FAERS Safety Report 21608923 (Version 1)
Quarter: 2022Q4

REPORT INFORMATION
  Report Type: Report from Study
  Country: US (occurrence: US)
  Receive Date: 20221117
  Receipt Date: 20221117
  Transmission Date: 20230112
  Serious: Yes (Life-Threatening, Hospitalization, Other)
  Sender: FDA-Public Use
  Company Number: US-002147023-NVSC2022US256982

PATIENT
  Sex: Female
  Weight: 133.81 kg

DRUGS (2)
  1. ENTRESTO [Suspect]
     Active Substance: SACUBITRIL\VALSARTAN
     Indication: Cardiac operation
     Dosage: 200 MG, BID (97/103 MG)
     Route: 048
     Dates: start: 202107, end: 202210
  2. ENTRESTO [Suspect]
     Active Substance: SACUBITRIL\VALSARTAN
     Indication: Heart valve replacement
     Dosage: 4 DOSAGE FORM (49/41 MG)
     Route: 065
     Dates: start: 20221111

REACTIONS (6)
  - Cardiac failure congestive [Unknown]
  - Fluid retention [Recovering/Resolving]
  - Dyspnoea [Recovered/Resolved]
  - Fatigue [Recovered/Resolved]
  - Product use issue [Not Recovered/Not Resolved]
  - Product use in unapproved indication [Unknown]

NARRATIVE: CASE EVENT DATE: 20220101
